FAERS Safety Report 7384641 (Version 4)
Quarter: 2015Q2

REPORT INFORMATION
  Report Type: Spontaneous
  Country: US (occurrence: US)
  Receive Date: 20100512
  Receipt Date: 20150615
  Transmission Date: 20150821
  Serious: Yes (Death, Hospitalization, Disabling, Other)
  Sender: FDA-Public Use
  Company Number: US-BAYER-201021683NA

PATIENT
  Age: 38 Year
  Sex: Female
  Weight: 57 kg

DRUGS (19)
  1. METOCLOPRAMIDE. [Concomitant]
     Active Substance: METOCLOPRAMIDE
  2. CHANTIX [Concomitant]
     Active Substance: VARENICLINE TARTRATE
     Dosage: 1 MG, BID
     Route: 048
     Dates: start: 20080409
  3. PROPOFOL. [Concomitant]
     Active Substance: PROPOFOL
  4. NIMBEX [Concomitant]
     Active Substance: CISATRACURIUM BESYLATE
  5. FENTANYL. [Concomitant]
     Active Substance: FENTANYL
  6. YASMIN [Suspect]
     Active Substance: DROSPIRENONE\ETHINYL ESTRADIOL
     Indication: PREMENSTRUAL DYSPHORIC DISORDER
     Dosage: UNK UNK, QD
     Route: 048
     Dates: start: 200707, end: 20080611
  7. CLARITIN [Concomitant]
     Active Substance: LORATADINE
     Dosage: UNK
     Route: 048
     Dates: start: 20080409
  8. BACITRACIN. [Concomitant]
     Active Substance: BACITRACIN
  9. MINOCYCLINE [Concomitant]
     Active Substance: MINOCYCLINE\MINOCYCLINE HYDROCHLORIDE
  10. BUTALBITAL, ACETAMINOPHEN, AND CAFFEINE [Concomitant]
     Active Substance: ACETAMINOPHEN\BUTALBITAL\CAFFEINE
     Indication: HEADACHE
     Dosage: 1 TABLET EVERY 6-8 HOURS AS NEEDED
     Route: 048
     Dates: start: 20080403
  11. BENADRYL [Concomitant]
     Active Substance: DIPHENHYDRAMINE HYDROCHLORIDE
     Dosage: UNK
     Route: 048
     Dates: start: 20080409
  12. HYDROCODONE BITARTRATE AND ACETAMINOPHEN [Concomitant]
     Active Substance: ACETAMINOPHEN\HYDROCODONE BITARTRATE
  13. FAMOTIDINE. [Concomitant]
     Active Substance: FAMOTIDINE
  14. ZOFRAN [Concomitant]
     Active Substance: ONDANSETRON HYDROCHLORIDE
  15. CEFAZOLIN [Concomitant]
     Active Substance: CEFAZOLIN
  16. NICODERM CQ [Concomitant]
     Active Substance: NICOTINE
     Indication: EX-TOBACCO USER
     Dosage: DAILY DOSE 21 MG
     Route: 062
     Dates: start: 20080611
  17. FIORICET [Concomitant]
     Active Substance: ACETAMINOPHEN\BUTALBITAL\CAFFEINE
     Dosage: UNK
     Route: 048
     Dates: start: 20080409
  18. DOVONEX [Concomitant]
     Active Substance: CALCIPOTRIENE
     Dosage: 60 G, BID
     Route: 061
     Dates: start: 20080417
  19. GENTAMYCIN [Concomitant]
     Active Substance: GENTAMICIN

REACTIONS (25)
  - Paraesthesia [Unknown]
  - Visual impairment [Unknown]
  - Death [Fatal]
  - Hemiparesis [Unknown]
  - Cognitive disorder [Unknown]
  - Anxiety [None]
  - Respiratory failure [Unknown]
  - Fear of disease [Unknown]
  - Cerebral infarction [Unknown]
  - Depression [None]
  - Memory impairment [Unknown]
  - Abnormal behaviour [None]
  - Fall [Unknown]
  - Speech disorder [Unknown]
  - Brain oedema [Unknown]
  - Mental impairment [Unknown]
  - Brain injury [Unknown]
  - Disturbance in attention [Unknown]
  - Headache [Not Recovered/Not Resolved]
  - Muscular weakness [Unknown]
  - Asthenia [Unknown]
  - Emotional disorder [None]
  - Hallucination, visual [None]
  - Hypoaesthesia [Unknown]
  - Physical disability [Unknown]

NARRATIVE: CASE EVENT DATE: 2007
